FAERS Safety Report 7817865-3 (Version None)
Quarter: 2011Q4

REPORT INFORMATION
  Report Type: 
  Country: None (occurrence: None)
  Receive Date: 20111017
  Receipt Date: 20111006
  Transmission Date: 20120403
  Serious: Yes (Hospitalization, Other)
  Sender: FDA-Public Use
  Company Number: US-MERCK-1010USA01906

PATIENT
  Age: 63 Year
  Sex: Male
  Weight: 96 kg

DRUGS (10)
  1. FOSAMAX [Suspect]
     Route: 048
     Dates: start: 19960301
  2. FOSAMAX [Suspect]
     Route: 048
     Dates: start: 19960301
  3. ALENDRONATE SODIUM [Suspect]
     Indication: OSTEOPENIA
     Route: 048
     Dates: start: 20081007, end: 20091201
  4. VITAMINS (UNSPECIFIED) [Concomitant]
     Route: 065
  5. FOSAMAX [Suspect]
     Route: 048
     Dates: start: 20000628, end: 20010308
  6. FOSAMAX [Suspect]
     Indication: OSTEOPOROSIS
     Route: 048
     Dates: start: 19951005, end: 19960301
  7. FOSAMAX [Suspect]
     Route: 048
     Dates: start: 20000628, end: 20010308
  8. FOSAMAX [Suspect]
     Route: 048
     Dates: start: 20030101
  9. FOSAMAX [Suspect]
     Route: 048
     Dates: start: 20030101
  10. FOSAMAX [Suspect]
     Indication: OSTEOPENIA
     Route: 048
     Dates: start: 19951005, end: 19960301

REACTIONS (47)
  - HYPERTRIGLYCERIDAEMIA [None]
  - VITAMIN D DEFICIENCY [None]
  - TREATMENT NONCOMPLIANCE [None]
  - SACROILIITIS [None]
  - OSTEOPOROSIS [None]
  - BACK PAIN [None]
  - METASTATIC NEOPLASM [None]
  - UMBILICAL HERNIA [None]
  - DIVERTICULITIS [None]
  - LUNG DISORDER [None]
  - TOOTH DISORDER [None]
  - DERMAL CYST [None]
  - BREAST TENDERNESS [None]
  - VERTEBROBASILAR INSUFFICIENCY [None]
  - BRONCHITIS [None]
  - ERYTHEMA [None]
  - WEIGHT INCREASED [None]
  - POLLAKIURIA [None]
  - SCOLIOSIS RADIATION [None]
  - TONSILLAR DISORDER [None]
  - COLONIC POLYP [None]
  - MUSCLE SPASMS [None]
  - FATIGUE [None]
  - OROPHARYNGEAL PAIN [None]
  - GASTROOESOPHAGEAL REFLUX DISEASE [None]
  - FALL [None]
  - URINARY TRACT OBSTRUCTION [None]
  - DYSPNOEA EXERTIONAL [None]
  - ABDOMINAL DISTENSION [None]
  - POST PROCEDURAL HAEMORRHAGE [None]
  - RENAL FAILURE ACUTE [None]
  - NERVE COMPRESSION [None]
  - URINARY TRACT DISORDER [None]
  - COMPRESSION FRACTURE [None]
  - FEMUR FRACTURE [None]
  - ABDOMINAL PAIN [None]
  - BLINDNESS UNILATERAL [None]
  - CONSTIPATION [None]
  - BACK INJURY [None]
  - OSTEOARTHRITIS [None]
  - UPPER-AIRWAY COUGH SYNDROME [None]
  - OVERDOSE [None]
  - BURSITIS [None]
  - TRANSIENT ISCHAEMIC ATTACK [None]
  - PAIN IN EXTREMITY [None]
  - CATARACT [None]
  - BENIGN PROSTATIC HYPERPLASIA [None]
